FAERS Safety Report 5740854-X (Version None)
Quarter: 2008Q2

REPORT INFORMATION
  Report Type: 
  Country: None (occurrence: None)
  Receive Date: 20080515
  Receipt Date: 20080410
  Transmission Date: 20081010
  Serious: No
  Sender: FDA-Public Use
  Company Number: WAES 0804USA02495

PATIENT
  Age: 41 Year
  Sex: Male

DRUGS (4)
  1. ISENTRESS [Suspect]
     Indication: HIV INFECTION
     Dosage: 400 MG/BID/PO
     Route: 048
     Dates: start: 20080101
  2. TRUVADA [Suspect]
  3. ALCOHOL [Concomitant]
  4. IBUPROFEN [Concomitant]

REACTIONS (4)
  - ALCOHOL POISONING [None]
  - DYSPEPSIA [None]
  - LIPOMATOSIS [None]
  - PAIN [None]
